FAERS Safety Report 7522846-3 (Version None)
Quarter: 2011Q2

REPORT INFORMATION
  Report Type: 
  Country: None (occurrence: None)
  Receive Date: 20110603
  Receipt Date: 20110527
  Transmission Date: 20111010
  Serious: Yes (Death)
  Sender: FDA-Public Use
  Company Number: PHHY2011FR47240

PATIENT
  Sex: Male
  Weight: 70 kg

DRUGS (19)
  1. CEFOTAXIME [Suspect]
     Dosage: UNK
     Dates: start: 20110129, end: 20110129
  2. METRONIDAZOLE [Suspect]
     Dosage: UNK
     Dates: start: 20110129, end: 20110208
  3. AMIKACIN [Suspect]
     Dosage: UNK
     Dates: start: 20110130, end: 20110206
  4. COLCHICINE [Suspect]
     Route: 042
  5. VITAMINA K [Suspect]
     Dosage: UNK
     Dates: start: 20110130, end: 20110130
  6. ZYVOX [Suspect]
     Dosage: UNK
     Dates: start: 20110204
  7. NEXIUM [Suspect]
     Dosage: 40 MG, UNK
     Dates: start: 20110130, end: 20110203
  8. AUGMENTIN '125' [Suspect]
     Dosage: UNK
     Dates: start: 20110129, end: 20110129
  9. POTASSIUM CHLORIDE [Suspect]
     Dosage: UNK
     Dates: start: 20110129, end: 20110130
  10. FENTANYL [Suspect]
     Dosage: UNK
     Dates: start: 20110129
  11. MAGNESIUM CHLORIDE [Suspect]
     Dosage: UNK
     Dates: start: 20110129
  12. SODIUM LACTATE IN PLASTIC CONTAINER [Suspect]
     Dosage: UNK
     Dates: start: 20110129
  13. COSYNTROPIN [Suspect]
     Dosage: UNK
     Dates: start: 20110131, end: 20110131
  14. FUROSEMIDE [Suspect]
     Dosage: UNK
     Dates: start: 20110201
  15. MIDAZOLAM HCL [Concomitant]
     Dosage: UNK
     Dates: start: 20110129
  16. DIPRIVAN [Suspect]
     Dosage: UNK
     Dates: start: 20110131, end: 20110201
  17. PIPERACILLIN AND TAZOBACTAM [Suspect]
     Dosage: 4G/500 MG
     Dates: start: 20110203, end: 20110204
  18. CEFTRIAXONE [Suspect]
     Dosage: UNK
     Dates: start: 20110129, end: 20110203
  19. COLCHICINE [Suspect]
     Dosage: 20 DF, UNK

REACTIONS (14)
  - HEPATIC STEATOSIS [None]
  - DERMATITIS EXFOLIATIVE [None]
  - VASOPLEGIA SYNDROME [None]
  - BLOOD CATECHOLAMINES INCREASED [None]
  - THROMBOCYTOPENIA [None]
  - EPISTAXIS [None]
  - HEPATIC NECROSIS [None]
  - PANCYTOPENIA [None]
  - RASH [None]
  - LEUKOPENIA [None]
  - HYPERBILIRUBINAEMIA [None]
  - RESPIRATORY DISTRESS [None]
  - HYPERSENSITIVITY [None]
  - CHOLESTASIS [None]
